FAERS Safety Report 13115827 (Version 1)
Quarter: 2017Q1

REPORT INFORMATION
  Report Type: Spontaneous
  Country: US (occurrence: US)
  Receive Date: 20170115
  Receipt Date: 20170115
  Transmission Date: 20170428
  Serious: No
  Sender: FDA-Public Use
  Company Number: US-DEXPHARM-20161560

PATIENT
  Age: 55 Year
  Sex: Female

DRUGS (1)
  1. DICLOFENAC SODIUM EXTENDED RELEASE TABLETS 100 MG [Suspect]
     Active Substance: DICLOFENAC SODIUM
     Indication: ADMINISTRATION SITE JOINT PAIN
     Dosage: 100 MG DAILY
     Route: 048

REACTIONS (2)
  - Product substitution issue [None]
  - Drug ineffective [Recovered/Resolved]
